FAERS Safety Report 21628203 (Version 1)
Quarter: 2022Q4

REPORT INFORMATION
  Report Type: Report from Study
  Country: US (occurrence: US)
  Receive Date: 20221122
  Receipt Date: 20221122
  Transmission Date: 20230113
  Serious: No
  Sender: FDA-Public Use
  Company Number: US-ABBVIE-22K-163-4518321-00

PATIENT
  Age: 30 Year
  Sex: Male

DRUGS (2)
  1. SKYRIZI [Suspect]
     Active Substance: RISANKIZUMAB-RZAA
     Indication: Psoriasis
     Dosage: WEEK 0, WEEK 4, THEN EVERY 12 WEEKS THEREAFTER?THE DRUG START DATE WAS 15 AUG 2022.?EVERY 12 WEEK...
     Route: 058
     Dates: start: 20220815
  2. SKYRIZI [Suspect]
     Active Substance: RISANKIZUMAB-RZAA
     Dosage: EVERY 12 WEEK
     Route: 058

REACTIONS (6)
  - Erythema [Recovered/Resolved]
  - Pruritus [Unknown]
  - Burning sensation [Unknown]
  - Psoriatic arthropathy [Unknown]
  - Off label use [Unknown]
  - Erythema [Unknown]

NARRATIVE: CASE EVENT DATE: 20220801
